FAERS Safety Report 19789841 (Version 4)
Quarter: 2021Q4

REPORT INFORMATION
  Report Type: Spontaneous
  Country: AU (occurrence: AU)
  Receive Date: 20210904
  Receipt Date: 20211203
  Transmission Date: 20220303
  Serious: Yes (Other)
  Sender: FDA-Public Use
  Company Number: AU-AMGEN-AUSSP2021133633

PATIENT
  Age: 64 Year
  Sex: Female

DRUGS (2)
  1. PROLIA [Suspect]
     Active Substance: DENOSUMAB
     Indication: Osteoporosis
     Dosage: UNK
     Route: 065
  2. CALCITRIOL [Concomitant]
     Active Substance: CALCITRIOL
     Dosage: UNK

REACTIONS (8)
  - Osteonecrosis [Not Recovered/Not Resolved]
  - Spinal compression fracture [Unknown]
  - Thoracic vertebral fracture [Unknown]
  - Myocardial infarction [Unknown]
  - Lumbar vertebral fracture [Unknown]
  - Hernia [Not Recovered/Not Resolved]
  - Drug ineffective [Unknown]
  - Tooth disorder [Unknown]

NARRATIVE: CASE EVENT DATE: 20190101
